FAERS Safety Report 18340008 (Version 1)
Quarter: 2020Q4

REPORT INFORMATION
  Report Type: Spontaneous
  Country: US (occurrence: US)
  Receive Date: 20201002
  Receipt Date: 20201002
  Transmission Date: 20210113
  Serious: Yes (Hospitalization, Other)
  Sender: FDA-Public Use
  Company Number: US-TEVA-2020-US-1834008

PATIENT
  Sex: Female

DRUGS (11)
  1. OXYCODONE EXTENDED-RELEASE TABLETS [Suspect]
     Active Substance: OXYCODONE
     Dosage: FORM OF ADMIN: EXTENDED-RELEASE TABLETS
     Route: 065
  2. SUBOXONE [Suspect]
     Active Substance: BUPRENORPHINE HYDROCHLORIDE\NALOXONE HYDROCHLORIDE
     Route: 065
  3. MS CONTIN [Suspect]
     Active Substance: MORPHINE SULFATE
     Route: 065
  4. KADIAN [Suspect]
     Active Substance: MORPHINE SULFATE
     Route: 065
  5. MORPHINE EXTENDED-RELEASE TABLETS [Suspect]
     Active Substance: MORPHINE SULFATE
     Dosage: FORM OF ADMIN: EXTENDED-RELEASE TABLETS
     Route: 065
  6. OXYCONTIN [Suspect]
     Active Substance: OXYCODONE HYDROCHLORIDE
     Route: 065
  7. OXYCODONE IMMEDIATE-RELEASE TABLETS [Suspect]
     Active Substance: OXYCODONE HYDROCHLORIDE
     Dosage: FORM OF ADMIN: IMMEDIATE RELEASE TABLET
     Route: 065
  8. HYDROCODONE AND ACETAMINOPHEN [Suspect]
     Active Substance: ACETAMINOPHEN\HYDROCODONE
     Route: 065
  9. HYDROMORPHONE IMMEDIATE RELEASE [Suspect]
     Active Substance: HYDROMORPHONE
     Dosage: FORM OF ADMIN: IMMEDIATE RELEASE
     Route: 065
  10. DILAUDID [Suspect]
     Active Substance: HYDROMORPHONE HYDROCHLORIDE
     Route: 065
  11. TRAMADOL EXTENDED-RELEASE TABLETS [Suspect]
     Active Substance: TRAMADOL HYDROCHLORIDE
     Dosage: FORM OF ADMIN: EXTENDED-RELEASE TABLETS
     Route: 065

REACTIONS (11)
  - Suicide attempt [Unknown]
  - Substance use disorder [Unknown]
  - Hospitalisation [Unknown]
  - Emotional distress [Unknown]
  - Economic problem [Unknown]
  - Depression [Unknown]
  - Illness [Unknown]
  - Dependence [Unknown]
  - Post-traumatic stress disorder [Unknown]
  - Overdose [Unknown]
  - Anxiety [Unknown]
